FAERS Safety Report 6048289-X (Version None)
Quarter: 2009Q1

REPORT INFORMATION
  Report Type: 
  Country: None (occurrence: None)
  Receive Date: 20090121
  Receipt Date: 20090121
  Transmission Date: 20090719
  Serious: No
  Sender: FDA-Public Use
  Company Number: None

PATIENT
  Sex: Male
  Weight: 90.7194 kg

DRUGS (1)
  1. NITROQUICK .4MG ETHEX [Suspect]
     Indication: ANGINA PECTORIS
     Dosage: 1 TAB PRN CHEST PAIN SL

REACTIONS (1)
  - PRODUCT QUALITY ISSUE [None]
